FAERS Safety Report 5321969-7 (Version None)
Quarter: 2007Q2

REPORT INFORMATION
  Report Type: 
  Country: None (occurrence: None)
  Receive Date: 20070511
  Receipt Date: 20070502
  Transmission Date: 20071010
  Serious: Yes (Disabling)
  Sender: FDA-Public Use
  Company Number: PHEH2007US03421

PATIENT
  Age: 47 Year
  Sex: Female
  Weight: 72.1 kg

DRUGS (5)
  1. FEMARA [Suspect]
     Indication: BREAST CANCER
     Dosage: 2.5 MG, QD
     Route: 048
  2. QUININE SULFATE [Concomitant]
     Indication: MUSCLE SPASMS
     Dosage: 1 TAB Q3DAYS
     Route: 048
  3. CALCIUM CHLORIDE [Concomitant]
     Dosage: 2 TABS,  QD
     Route: 048
  4. VITAMIN CAP [Concomitant]
     Dosage: UNK, QD
     Route: 048
  5. GLUCOSAMINE [Concomitant]

REACTIONS (5)
  - ARTHRALGIA [None]
  - ARTHRITIS [None]
  - BURSITIS [None]
  - CONDITION AGGRAVATED [None]
  - GAIT DISTURBANCE [None]
